FAERS Safety Report 20139817 (Version 1)
Quarter: 2021Q4

REPORT INFORMATION
  Report Type: Spontaneous
  Country: DE (occurrence: DE)
  Receive Date: 20211202
  Receipt Date: 20211202
  Transmission Date: 20220303
  Serious: Yes (Other)
  Sender: FDA-Public Use
  Company Number: DE-BRISTOL-MYERS SQUIBB COMPANY-BMS-2021-126875

PATIENT
  Age: 52 Year
  Sex: Male

DRUGS (6)
  1. OPDIVO [Suspect]
     Active Substance: NIVOLUMAB
     Indication: Malignant melanoma
     Dosage: UNK
     Route: 065
     Dates: start: 202006
  2. OPDIVO [Suspect]
     Active Substance: NIVOLUMAB
     Dosage: REVERSE DOSAGE
     Route: 065
     Dates: start: 202011
  3. YERVOY [Suspect]
     Active Substance: IPILIMUMAB
     Indication: Malignant melanoma
     Dosage: UNK
     Route: 065
     Dates: start: 202006
  4. YERVOY [Suspect]
     Active Substance: IPILIMUMAB
     Dosage: REVERSE DOSAGE
     Route: 065
     Dates: start: 202011
  5. ALPELISIB [Concomitant]
     Active Substance: ALPELISIB
     Indication: Product used for unknown indication
     Dosage: UNK
     Route: 065
     Dates: start: 202009
  6. DACARBAZINE [Concomitant]
     Active Substance: DACARBAZINE
     Indication: Product used for unknown indication
     Dosage: UNK
     Route: 065
     Dates: start: 202009, end: 202011

REACTIONS (5)
  - Malignant neoplasm progression [Unknown]
  - Wound infection pseudomonas [Unknown]
  - Sepsis [Unknown]
  - Immune-mediated hepatitis [Recovered/Resolved]
  - Soft tissue infection [Unknown]

NARRATIVE: CASE EVENT DATE: 20200701
